FAERS Safety Report 8469372-5 (Version None)
Quarter: 2012Q2

REPORT INFORMATION
  Report Type: 
  Country: None (occurrence: None)
  Receive Date: 20120626
  Receipt Date: 20120611
  Transmission Date: 20120825
  Serious: No
  Sender: FDA-Public Use
  Company Number: US-ASTRAZENECA-2012SE39258

PATIENT
  Age: 46 Year
  Sex: Male
  Weight: 90.7 kg

DRUGS (5)
  1. SEROQUEL [Suspect]
     Indication: ABNORMAL BEHAVIOUR
     Route: 048
     Dates: start: 20111101, end: 20120426
  2. TRILEPTAL [Concomitant]
  3. CYMBALTA [Concomitant]
  4. VIMPAT [Concomitant]
  5. SEROQUEL [Suspect]
     Dosage: GENERIC
     Route: 048
     Dates: start: 20120426

REACTIONS (2)
  - SCREAMING [None]
  - OFF LABEL USE [None]
